FAERS Safety Report 9804623 (Version 1)
Quarter: 2014Q1

REPORT INFORMATION
  Report Type: Spontaneous
  Country: US (occurrence: US)
  Receive Date: 20140108
  Receipt Date: 20140108
  Transmission Date: 20141002
  Serious: Yes (Other)
  Sender: FDA-Public Use
  Company Number: US-PFIZER INC-2014004624

PATIENT
  Age: 48 Year
  Sex: Female
  Weight: 57.14 kg

DRUGS (2)
  1. CHANTIX [Suspect]
     Indication: SMOKING CESSATION THERAPY
     Dosage: 0.5 MG, 1X/DAY
     Route: 048
     Dates: start: 201311, end: 2013
  2. CHANTIX [Suspect]
     Dosage: 1 MG, 1X/DAY
     Route: 048
     Dates: start: 2013, end: 2013

REACTIONS (1)
  - Kidney infection [Recovered/Resolved]
